FAERS Safety Report 5074978-X (Version None)
Quarter: 2006Q3

REPORT INFORMATION
  Report Type: 
  Country: None (occurrence: None)
  Receive Date: 20060809
  Receipt Date: 20060525
  Transmission Date: 20061208
  Serious: Yes (Hospitalization)
  Sender: FDA-Public Use
  Company Number: US-BRISTOL-MYERS SQUIBB COMPANY-13390703

PATIENT
  Age: 66 Year
  Sex: Male
  Weight: 105 kg

DRUGS (5)
  1. CYTOXAN [Suspect]
     Indication: BREAST CANCER METASTATIC
     Route: 042
     Dates: start: 20060405, end: 20060612
  2. ADRIAMYCIN PFS [Suspect]
     Indication: BREAST CANCER METASTATIC
     Route: 042
     Dates: start: 20060405, end: 20060522
  3. ABRAXANE [Suspect]
     Indication: BREAST CANCER METASTATIC
     Route: 042
     Dates: start: 20060407, end: 20060525
  4. PROCRIT [Suspect]
     Indication: ANAEMIA OF MALIGNANT DISEASE
     Route: 058
     Dates: start: 20060417, end: 20060707
  5. NSAID [Suspect]

REACTIONS (14)
  - ANAEMIA [None]
  - CARDIAC FAILURE CONGESTIVE [None]
  - DEHYDRATION [None]
  - DYSPNOEA [None]
  - FEBRILE NEUTROPENIA [None]
  - FLUID OVERLOAD [None]
  - MUSCULOSKELETAL CHEST PAIN [None]
  - NEUTROPENIA [None]
  - PNEUMONIA [None]
  - RENAL FAILURE ACUTE [None]
  - SINUS TACHYCARDIA [None]
  - SUPRAVENTRICULAR TACHYCARDIA [None]
  - TACHYCARDIA [None]
  - THROMBOCYTOPENIA [None]
